FAERS Safety Report 10270853 (Version 1)
Quarter: 2014Q3

REPORT INFORMATION
  Report Type: Spontaneous
  Country: IT (occurrence: IT)
  Receive Date: 20140701
  Receipt Date: 20140701
  Transmission Date: 20150326
  Serious: Yes (Other)
  Sender: FDA-Public Use
  Company Number: IT-ELI_LILLY_AND_COMPANY-IT201406006997

PATIENT
  Age: 78 Year
  Sex: Male

DRUGS (5)
  1. HUMALOG [Suspect]
     Active Substance: INSULIN LISPRO
     Indication: INTENTIONAL SELF-INJURY
     Dosage: UNK
     Route: 065
     Dates: start: 20140615, end: 20140615
  2. STILNOX [Concomitant]
     Active Substance: ZOLPIDEM TARTRATE
     Dosage: 10 MG, UNK
  3. LANTUS [Concomitant]
     Active Substance: INSULIN GLARGINE
  4. OLPRESS [Concomitant]
     Active Substance: OLMESARTAN MEDOXOMIL
  5. ASPIRIN. [Concomitant]
     Active Substance: ASPIRIN
     Dosage: 100 MG, UNK

REACTIONS (3)
  - Hypoglycaemia [Recovered/Resolved]
  - Drug abuse [Unknown]
  - Intentional self-injury [Recovered/Resolved]

NARRATIVE: CASE EVENT DATE: 20140615
